FAERS Safety Report 9262374 (Version 3)
Quarter: 2013Q2

REPORT INFORMATION
  Report Type: Spontaneous
  Country: GB (occurrence: GB)
  Receive Date: 20130430
  Receipt Date: 20130624
  Transmission Date: 20140414
  Serious: Yes (Other)
  Sender: FDA-Public Use
  Company Number: GB-AMGEN-GBRSP2013029335

PATIENT
  Sex: 0

DRUGS (1)
  1. PROLIA [Suspect]
     Indication: PRODUCT USED FOR UNKNOWN INDICATION
     Dosage: UNK

REACTIONS (4)
  - Hip fracture [Unknown]
  - Fall [Unknown]
  - Humerus fracture [Unknown]
  - Blood parathyroid hormone increased [Unknown]
